FAERS Safety Report 5023789-X (Version None)
Quarter: 2006Q2

REPORT INFORMATION
  Report Type: 
  Country: None (occurrence: None)
  Receive Date: 20060606
  Receipt Date: 20060523
  Transmission Date: 20061013
  Serious: Yes (Hospitalization, Other)
  Sender: FDA-Public Use
  Company Number: HQWYE441720JAN06

PATIENT
  Age: 53 Year
  Sex: Female
  Weight: 81.4 kg

DRUGS (8)
  1. EFFEXOR XR [Suspect]
     Indication: DEPRESSION
     Dosage: 75 MG 1X PER 1 DAY, ORAL
     Route: 048
     Dates: start: 20051216, end: 20060106
  2. COLACE (DOCUSATE SODIUM) [Concomitant]
  3. SYNTHROID [Concomitant]
  4. FLEXERIL [Concomitant]
  5. WARFARIN (WARFARIN) [Concomitant]
  6. NEURONTIN [Concomitant]
  7. VIVELLE [Concomitant]
  8. ACETAMINOPHEN [Concomitant]

REACTIONS (3)
  - DRUG TOXICITY [None]
  - HEPATITIS [None]
  - PANCREATITIS [None]
